FAERS Safety Report 20961330 (Version 1)
Quarter: 2022Q2

REPORT INFORMATION
  Report Type: Spontaneous
  Country: DE (occurrence: DE)
  Receive Date: 20220615
  Receipt Date: 20220615
  Transmission Date: 20220721
  Serious: Yes (Life-Threatening, Hospitalization, Other)
  Sender: FDA-Public Use
  Company Number: DE-IMMUNOCORE, LTD.-2022-IMC-000819

PATIENT
  Age: 51 Year
  Sex: Male

DRUGS (6)
  1. NIVOLUMAB [Suspect]
     Active Substance: NIVOLUMAB
     Indication: Malignant melanoma
     Dates: start: 20180119, end: 20180323
  2. NIVOLUMAB [Suspect]
     Active Substance: NIVOLUMAB
     Dosage: 369 MILLIGRAM, QOW
     Route: 042
     Dates: start: 20180417, end: 20180502
  3. IPILIMUMAB [Suspect]
     Active Substance: IPILIMUMAB
     Indication: Malignant melanoma
     Route: 065
     Dates: start: 20180119, end: 20180323
  4. TEBENTAFUSP [Suspect]
     Active Substance: TEBENTAFUSP
     Indication: Malignant melanoma
  5. OPIPRAMOL [Suspect]
     Active Substance: OPIPRAMOL
     Indication: Depression
     Dates: start: 201501
  6. DURVALUMAB [Concomitant]
     Active Substance: DURVALUMAB
     Indication: Product used for unknown indication
     Dates: start: 20180523, end: 20200211

REACTIONS (16)
  - Rash [Recovered/Resolved]
  - Hyperhidrosis [Unknown]
  - Malignant neoplasm progression [Unknown]
  - Angioedema [Recovered/Resolved]
  - Pyrexia [Recovered/Resolved]
  - Cytokine release syndrome [Recovered/Resolved]
  - Skin hypopigmentation [Recovered/Resolved]
  - Photosensitivity reaction [Recovered/Resolved]
  - Dysgeusia [Recovered/Resolved]
  - Skin hyperpigmentation [Recovered/Resolved]
  - Pruritus [Recovered/Resolved]
  - Tumour pain [Recovered/Resolved]
  - Blister [Recovered/Resolved]
  - Erythema multiforme [Recovered/Resolved]
  - Fatigue [Not Recovered/Not Resolved]
  - Prescribed overdose [Unknown]

NARRATIVE: CASE EVENT DATE: 20180120
